FAERS Safety Report 9868028 (Version 2)
Quarter: 2014Q1

REPORT INFORMATION
  Report Type: Spontaneous
  Country: US (occurrence: US)
  Receive Date: 20140204
  Receipt Date: 20140204
  Transmission Date: 20141002
  Serious: Yes (Other)
  Sender: FDA-Public Use
  Company Number: US-GE HEALTHCARE MEDICAL DIAGNOSTICS-OSCN-PR-1003S-0072

PATIENT
  Sex: Male

DRUGS (17)
  1. OMNISCAN [Suspect]
     Indication: RENAL MASS
     Dates: start: 20020410, end: 20020410
  2. OMNISCAN [Suspect]
     Indication: TRANSIENT ISCHAEMIC ATTACK
     Dates: start: 20040701, end: 20040701
  3. OMNISCAN [Suspect]
     Indication: CEREBROVASCULAR ACCIDENT
     Dates: start: 20040718, end: 20040718
  4. EPOGEN [Concomitant]
  5. METOPROLOL [Concomitant]
  6. RENAGEL [Concomitant]
  7. AMLODIPINE [Concomitant]
  8. PHOSLO [Concomitant]
  9. MINOXIDIL [Concomitant]
  10. RAMIPRIL [Concomitant]
  11. SERTRALINE [Concomitant]
  12. NEPHROVITE [Concomitant]
  13. ASPIRIN [Concomitant]
  14. GENGRAF [Concomitant]
  15. CELLCEPT [Concomitant]
  16. FELODIPINE [Concomitant]
  17. PREDNISONE [Concomitant]

REACTIONS (1)
  - Nephrogenic systemic fibrosis [Not Recovered/Not Resolved]
